FAERS Safety Report 23467459 (Version 1)
Quarter: 2024Q1

REPORT INFORMATION
  Report Type: Other
  Country: SE (occurrence: SE)
  Receive Date: 20240201
  Receipt Date: 20240201
  Transmission Date: 20240410
  Serious: Yes (Other)
  Sender: FDA-Public Use
  Company Number: None

PATIENT

DRUGS (2)
  1. DOXYLAMINE SUCCINATE\PYRIDOXINE HYDROCHLORIDE [Suspect]
     Active Substance: DOXYLAMINE SUCCINATE\PYRIDOXINE HYDROCHLORIDE
     Indication: Hyperemesis gravidarum
     Dosage: 1 TABLET IN THE MORNING, 1 IN THE MIDDLE OF THE DAY, 2 IN THE EVENING
     Route: 048
     Dates: start: 202307
  2. Ondansetron Abacus Medicine [Concomitant]
     Indication: Product used for unknown indication
     Dosage: 1 TABLET IN THE MORNING, 1 IN THE EVENING
     Route: 048
     Dates: start: 20230821

REACTIONS (6)
  - Diplopia [Not Recovered/Not Resolved]
  - Dry throat [Not Recovered/Not Resolved]
  - Nightmare [Not Recovered/Not Resolved]
  - Dizziness [Not Recovered/Not Resolved]
  - Vertigo [Not Recovered/Not Resolved]
  - Product use in unapproved indication [Not Recovered/Not Resolved]

NARRATIVE: CASE EVENT DATE: 20230701
